FAERS Safety Report 17338351 (Version 1)
Quarter: 2020Q1

REPORT INFORMATION
  Report Type: Spontaneous
  Country: ES (occurrence: ES)
  Receive Date: 20200129
  Receipt Date: 20200129
  Transmission Date: 20200409
  Serious: Yes (Other)
  Sender: FDA-Public Use
  Company Number: NVSC2020ES020269

PATIENT
  Age: 7 Month
  Sex: Male

DRUGS (1)
  1. OCTREOTIDE. [Suspect]
     Active Substance: OCTREOTIDE
     Indication: HYPERINSULINISM
     Dosage: 8.9 MG/KG, QID
     Route: 065

REACTIONS (4)
  - Haemorrhage [Unknown]
  - Contusion [Unknown]
  - Vitamin K deficiency [Unknown]
  - Pancreatic failure [Unknown]
